FAERS Safety Report 24673027 (Version 1)
Quarter: 2024Q4

REPORT INFORMATION
  Report Type: Spontaneous
  Country: MX (occurrence: MX)
  Receive Date: 20241128
  Receipt Date: 20241128
  Transmission Date: 20250114
  Serious: Yes (Other)
  Sender: GRANULES PHARMACEUTICALS INC
  Company Number: MX-GRANULES-MX-2024GRALIT00595

PATIENT
  Age: 39 Year
  Sex: Female

DRUGS (2)
  1. NAPROXEN [Suspect]
     Active Substance: NAPROXEN
     Indication: Product used for unknown indication
     Route: 048
  2. ACETAMINOPHEN [Suspect]
     Active Substance: ACETAMINOPHEN
     Indication: Product used for unknown indication
     Dosage: INCREASED DOSE UP TO 500 MG WITH 30 MINUTES INTERVAL
     Route: 065

REACTIONS (1)
  - Acute generalised exanthematous pustulosis [Unknown]
